FAERS Safety Report 6363025-5 (Version None)
Quarter: 2009Q3

REPORT INFORMATION
  Report Type: 
  Country: None (occurrence: None)
  Receive Date: 20090919
  Receipt Date: 20090615
  Transmission Date: 20100115
  Serious: No
  Sender: FDA-Public Use
  Company Number: US-ABBOTT-09P-163-0579936-00

PATIENT
  Sex: Male
  Weight: 99.88 kg

DRUGS (9)
  1. HUMIRA [Suspect]
     Indication: PSORIASIS
     Route: 058
     Dates: start: 20090101, end: 20090201
  2. HUMIRA [Suspect]
     Indication: PSORIATIC ARTHROPATHY
     Route: 058
     Dates: start: 20090201
  3. HYDROXYZINE [Concomitant]
     Indication: PRURITUS
     Route: 048
  4. POTASSIUM CHLORIDE [Concomitant]
     Indication: DRUG USE FOR UNKNOWN INDICATION
     Route: 048
  5. FOLIC ACID [Concomitant]
     Indication: DRUG USE FOR UNKNOWN INDICATION
  6. TORSEMIDE [Concomitant]
     Indication: DIURETIC THERAPY
     Dosage: TAKES 2 TABS IN AM AND PM
     Route: 048
  7. DIOVAN [Concomitant]
     Indication: HYPERTENSION
     Route: 048
  8. NEXIUM [Concomitant]
     Indication: GASTRIC DISORDER
     Route: 048
  9. PREDNISONE [Concomitant]
     Indication: DRUG USE FOR UNKNOWN INDICATION
     Dosage: UNKNOWN DOSE, BUT WEANING OFF OF MEDICATION

REACTIONS (3)
  - ARTHROPOD BITE [None]
  - INFECTION [None]
  - INJECTION SITE PAIN [None]
